FAERS Safety Report 26191847 (Version 1)
Quarter: 2025Q4

REPORT INFORMATION
  Report Type: Spontaneous
  Country: US (occurrence: US)
  Receive Date: 20251223
  Receipt Date: 20251223
  Transmission Date: 20260117
  Serious: No
  Sender: VERTEX
  Company Number: US-VERTEX PHARMACEUTICALS-2025-021721

PATIENT
  Sex: Male

DRUGS (3)
  1. TRIKAFTA [Suspect]
     Active Substance: ELEXACAFTOR\IVACAFTOR\TEZACAFTOR
     Indication: Cystic fibrosis
     Dosage: UNKNOWN DOSAGE REGIMEN
     Route: 061
  2. TRIKAFTA [Suspect]
     Active Substance: ELEXACAFTOR\IVACAFTOR\TEZACAFTOR
     Dosage: HALF DOSE: ORANGE PILLS ONE DAY AND BLUE THE NEXT
     Route: 061
  3. TRIKAFTA [Suspect]
     Active Substance: ELEXACAFTOR\IVACAFTOR\TEZACAFTOR
     Dosage: BACK TO FULL DOSE
     Route: 061

REACTIONS (6)
  - Anxiety [Recovered/Resolved]
  - Poor quality sleep [Unknown]
  - Brain fog [Recovering/Resolving]
  - Pulmonary function test decreased [Recovering/Resolving]
  - Paranoia [Unknown]
  - Depression [Unknown]
